FAERS Safety Report 14369981 (Version 2)
Quarter: 2018Q1

REPORT INFORMATION
  Report Type: Report from Study
  Country: US (occurrence: US)
  Receive Date: 20180110
  Receipt Date: 20180129
  Transmission Date: 20180509
  Serious: Yes (Death, Hospitalization)
  Sender: FDA-Public Use
  Company Number: PHEH2018US001163

PATIENT
  Age: 74 Year
  Sex: Male
  Weight: 88.8 kg

DRUGS (3)
  1. VOTRIENT [Suspect]
     Active Substance: PAZOPANIB HYDROCHLORIDE
     Indication: RENAL CANCER RECURRENT
     Dosage: 400 MG, QD
     Route: 048
     Dates: start: 201505
  2. LISINOPRIL. [Concomitant]
     Active Substance: LISINOPRIL
     Indication: HYPERTENSION
     Dosage: 5 MG, QD
     Route: 048
  3. IMODIUM [Concomitant]
     Active Substance: LOPERAMIDE HYDROCHLORIDE
     Indication: DIARRHOEA
     Dosage: 1-2 DF, PRN
     Route: 048

REACTIONS (7)
  - Urinary tract infection [Unknown]
  - Asthenia [Unknown]
  - Jaundice [Fatal]
  - Prostatic abscess [Unknown]
  - Chromaturia [Fatal]
  - Hepatic failure [Fatal]
  - Fatigue [Fatal]

NARRATIVE: CASE EVENT DATE: 20171227
